FAERS Safety Report 7079251-6 (Version None)
Quarter: 2010Q4

REPORT INFORMATION
  Report Type: 
  Country: None (occurrence: None)
  Receive Date: 20101021
  Receipt Date: 20101006
  Transmission Date: 20110411
  Serious: Yes (Other)
  Sender: FDA-Public Use
  Company Number: 2010MA003382

PATIENT
  Age: 54 Year
  Sex: Male

DRUGS (3)
  1. TRIAMCINOLONE ACETONIDE [Suspect]
     Indication: LOCAL ANAESTHESIA
     Dosage: ;IA
     Route: 014
  2. BUPIVACAINE HCL [Concomitant]
  3. IOPAMIDOL [Concomitant]

REACTIONS (6)
  - ANAPHYLACTIC REACTION [None]
  - ANGIOEDEMA [None]
  - DIZZINESS [None]
  - DYSPNOEA [None]
  - PRURITUS [None]
  - URTICARIA [None]
